FAERS Safety Report 8556114 (Version 3)
Quarter: 2013Q1

REPORT INFORMATION
  Report Type: Spontaneous
  Country: JP (occurrence: JP)
  Receive Date: 20120510
  Receipt Date: 20130228
  Transmission Date: 20140127
  Serious: Yes (Death, Life-Threatening, Hospitalization)
  Sender: FDA-Public Use
  Company Number: JP-ELI_LILLY_AND_COMPANY-JP201205001819

PATIENT
  Age: 76 Year
  Sex: Female
  Weight: 44.8 kg

DRUGS (4)
  1. ALIMTA [Suspect]
     Indication: LUNG ADENOCARCINOMA RECURRENT
     Dosage: 600 MG, UNK
     Route: 042
     Dates: start: 20120315
  2. ALIMTA [Suspect]
     Dosage: 500 MG, UNK
     Route: 042
     Dates: start: 20120409
  3. PANVITAN [Concomitant]
     Dosage: 1 G, QD
     Route: 048
     Dates: start: 20120308, end: 20120420
  4. METHYCOBAL [Concomitant]
     Dosage: 1000 UG, UNK
     Route: 030
     Dates: start: 20120308, end: 20120312

REACTIONS (6)
  - Disseminated intravascular coagulation [Fatal]
  - Pneumonia [Fatal]
  - Malignant neoplasm progression [Fatal]
  - Febrile neutropenia [Not Recovered/Not Resolved]
  - C-reactive protein increased [Recovered/Resolved]
  - Pyrexia [Recovered/Resolved]
